FAERS Safety Report 9102218 (Version 4)
Quarter: 2014Q3

REPORT INFORMATION
  Report Type: Spontaneous
  Country: US (occurrence: US)
  Receive Date: 20130218
  Receipt Date: 20140714
  Transmission Date: 20150326
  Serious: Yes (Hospitalization, Disabling, Other)
  Sender: FDA-Public Use
  Company Number: US-009507513-1302USA006731

PATIENT
  Sex: Female
  Weight: 82.86 kg

DRUGS (3)
  1. CELEXA [Concomitant]
     Active Substance: CITALOPRAM HYDROBROMIDE
     Indication: ANXIETY
     Dosage: 20 MG, QD
     Route: 048
     Dates: start: 2010
  2. NUVARING [Suspect]
     Active Substance: ETHINYL ESTRADIOL\ETONOGESTREL
     Indication: MENSTRUATION IRREGULAR
     Dosage: UNK
     Route: 067
     Dates: start: 20111011, end: 20120221
  3. XANAX [Concomitant]
     Active Substance: ALPRAZOLAM
     Indication: ANXIETY
     Dosage: 1 MG, PRN
     Dates: start: 2010

REACTIONS (24)
  - Dermatitis [Unknown]
  - Encephalomalacia [Unknown]
  - Fall [Unknown]
  - Device expulsion [Unknown]
  - Headache [Not Recovered/Not Resolved]
  - Loss of consciousness [Unknown]
  - Vomiting [Unknown]
  - Nicotine dependence [Unknown]
  - Cerebrovascular accident [Not Recovered/Not Resolved]
  - Urinary tract infection [Unknown]
  - Periorbital oedema [Unknown]
  - Drug dependence [Unknown]
  - Fatigue [Unknown]
  - Protein total decreased [Unknown]
  - Concussion [Unknown]
  - Depression [Unknown]
  - Cognitive disorder [Not Recovered/Not Resolved]
  - Hypercoagulation [Not Recovered/Not Resolved]
  - Head injury [Unknown]
  - Mitral valve incompetence [Unknown]
  - Migraine [Unknown]
  - Fall [Unknown]
  - Back pain [Unknown]
  - Amenorrhoea [Unknown]

NARRATIVE: CASE EVENT DATE: 20111101
